FAERS Safety Report 14614613 (Version 1)
Quarter: 2018Q1

REPORT INFORMATION
  Report Type: Spontaneous
  Country: US (occurrence: US)
  Receive Date: 20180308
  Receipt Date: 20180308
  Transmission Date: 20180509
  Serious: No
  Sender: FDA-Public Use
  Company Number: US-PERRIGO-17US031227

PATIENT
  Age: 59 Year
  Sex: Female
  Weight: 52.15 kg

DRUGS (5)
  1. ANTIHYPERTENSIVES [Concomitant]
     Active Substance: UNSPECIFIED INGREDIENT
     Indication: HYPERTENSION
     Dosage: UNK
     Route: 065
  2. ANXIOLYTICS [Concomitant]
     Active Substance: UNSPECIFIED INGREDIENT
     Indication: ANXIETY
  3. NICOTINE POLACRILEX [Suspect]
     Active Substance: NICOTINE
     Indication: SMOKING CESSATION THERAPY
     Dosage: 4 MG, EVERY 2 HOURS
     Route: 002
     Dates: start: 20171208
  4. ANXIOLYTICS [Concomitant]
     Active Substance: UNSPECIFIED INGREDIENT
     Indication: STRESS
     Dosage: UNK
     Route: 065
  5. HYPNOTICS AND SEDATIVES [Concomitant]
     Active Substance: UNSPECIFIED INGREDIENT
     Indication: INSOMNIA
     Dosage: UNK
     Route: 065

REACTIONS (1)
  - Drug ineffective [Unknown]

NARRATIVE: CASE EVENT DATE: 20171208
